FAERS Safety Report 8389226-2 (Version None)
Quarter: 2012Q2

REPORT INFORMATION
  Report Type: 
  Country: None (occurrence: None)
  Receive Date: 20120528
  Receipt Date: 20120522
  Transmission Date: 20120825
  Serious: Yes (Other)
  Sender: FDA-Public Use
  Company Number: PHHY2012JP045053

PATIENT

DRUGS (1)
  1. SANDOSTATIN [Suspect]
     Dosage: UNK
     Route: 058
     Dates: start: 20120521

REACTIONS (2)
  - HEPATIC CIRRHOSIS [None]
  - BLOOD BILIRUBIN INCREASED [None]
